FAERS Safety Report 6571297-7 (Version None)
Quarter: 2010Q1

REPORT INFORMATION
  Report Type: 
  Country: None (occurrence: None)
  Receive Date: 20100129
  Receipt Date: 20100115
  Transmission Date: 20100710
  Serious: Yes (Hospitalization, Other)
  Sender: FDA-Public Use
  Company Number: CLOF-1000835

PATIENT
  Age: 71 Year
  Sex: Male
  Weight: 81 kg

DRUGS (6)
  1. EVOLTRA (CLOFARABINE) SOLUTION FOR INFUSION [Suspect]
     Indication: ACUTE MYELOID LEUKAEMIA
     Dosage: 40 MG, QDX5, INTRAVENOUS
     Route: 042
     Dates: start: 20091217, end: 20091221
  2. CYTARABINE [Suspect]
     Indication: ACUTE MYELOID LEUKAEMIA
     Dosage: 100 MG/M2, QDX5
     Dates: start: 20091217, end: 20091221
  3. IMATINIB MESYLATE [Concomitant]
  4. CYTARABINE [Concomitant]
  5. MITOXANTRONE (MITOXANTRONE) [Concomitant]
  6. AZACITIDINE (AZACITIDINE) [Concomitant]

REACTIONS (5)
  - BRONCHOPULMONARY ASPERGILLOSIS [None]
  - FEBRILE NEUTROPENIA [None]
  - PANCYTOPENIA [None]
  - PSEUDOMONAL SEPSIS [None]
  - RASH [None]
